FAERS Safety Report 5114277-0 (Version None)
Quarter: 2006Q3

REPORT INFORMATION
  Report Type: 
  Country: None (occurrence: None)
  Receive Date: 20060731
  Receipt Date: 20060628
  Transmission Date: 20061208
  Serious: No
  Sender: FDA-Public Use
  Company Number: 2006PV016687

PATIENT
  Age: 49 Year
  Sex: Female

DRUGS (3)
  1. BYETTA [Suspect]
     Indication: DIABETES MELLITUS
     Dosage: 5 MCG SC
     Route: 058
  2. NPH INSULIN [Concomitant]
  3. ORAL MEDICATIONS [Concomitant]

REACTIONS (2)
  - ASTHENIA [None]
  - HUNGER [None]
